FAERS Safety Report 21715380 (Version 1)
Quarter: 2022Q4

REPORT INFORMATION
  Report Type: Report from Study
  Country: PR (occurrence: PR)
  Receive Date: 20221212
  Receipt Date: 20221212
  Transmission Date: 20230113
  Serious: No
  Sender: FDA-Public Use
  Company Number: PR-ABBVIE-4195514

PATIENT
  Sex: Female
  Weight: 20.865 kg

DRUGS (1)
  1. HUMIRA [Suspect]
     Active Substance: ADALIMUMAB
     Indication: Juvenile idiopathic arthritis
     Dosage: STRENGTH: 20 MG
     Route: 058
     Dates: start: 20210702

REACTIONS (1)
  - Mycoplasma infection [Not Recovered/Not Resolved]

NARRATIVE: CASE EVENT DATE: 20221020
